FAERS Safety Report 10983928 (Version 2)
Quarter: 2015Q3

REPORT INFORMATION
  Report Type: Report from Study
  Country: US (occurrence: US)
  Receive Date: 20150403
  Receipt Date: 20150707
  Transmission Date: 20151125
  Serious: Yes (Other)
  Sender: FDA-Public Use
  Company Number: US-GILEAD-2015-0145238

PATIENT
  Age: 48 Year
  Sex: Female

DRUGS (1)
  1. EFAVIRENZ/EMTRICITABINE/TENOFOVIR DISOPROXIL FUMARATE [Suspect]
     Active Substance: EFAVIRENZ\EMTRICITABINE\TENOFOVIR DISOPROXIL FUMARATE
     Indication: PRODUCT USED FOR UNKNOWN INDICATION
     Dosage: UNK
     Route: 065
     Dates: start: 201501

REACTIONS (9)
  - Pregnancy [Unknown]
  - HIV test positive [Unknown]
  - Blood creatinine increased [Unknown]
  - Diabetes mellitus [Unknown]
  - Drug interaction [Unknown]
  - Hypertension [Unknown]
  - Drug ineffective [Unknown]
  - CD4 lymphocytes abnormal [Unknown]
  - Drug resistance [Unknown]

NARRATIVE: CASE EVENT DATE: 2015
